FAERS Safety Report 7764761-6 (Version None)
Quarter: 2011Q3

REPORT INFORMATION
  Report Type: 
  Country: None (occurrence: None)
  Receive Date: 20110921
  Receipt Date: 20110921
  Transmission Date: 20111222
  Serious: Yes (Other)
  Sender: FDA-Public Use
  Company Number: None

PATIENT
  Age: 48 Year
  Sex: Female
  Weight: 57.9 kg

DRUGS (2)
  1. HUMATE-P [Concomitant]
     Indication: PROPHYLAXIS
     Dosage: 1052 RCO UNITS
     Route: 040
     Dates: start: 20110908, end: 20110908
  2. HUMATE-P [Suspect]
     Indication: VON WILLEBRAND'S DISEASE
     Dosage: 1972 RCO UNITS
     Route: 040
     Dates: start: 20110908, end: 20110908

REACTIONS (8)
  - CHEST DISCOMFORT [None]
  - ASTHENIA [None]
  - DYSPNOEA [None]
  - THROAT TIGHTNESS [None]
  - FATIGUE [None]
  - INFUSION RELATED REACTION [None]
  - VERTIGO [None]
  - COUGH [None]
